FAERS Safety Report 23306188 (Version 1)
Quarter: 2023Q4

REPORT INFORMATION
  Report Type: Spontaneous
  Country: US (occurrence: US)
  Receive Date: 20231218
  Receipt Date: 20231218
  Transmission Date: 20240110
  Serious: Yes (Other)
  Sender: FDA-Public Use
  Company Number: US-GLAXOSMITHKLINE-US2023173098

PATIENT

DRUGS (1)
  1. TRELEGY ELLIPTA [Suspect]
     Active Substance: FLUTICASONE FUROATE\UMECLIDINIUM BROMIDE\VILANTEROL TRIFENATATE
     Indication: Chronic obstructive pulmonary disease
     Dosage: UNK, QD,200-62.5MCG INH 30PUSE 1 INHALATION BY MOUTH ONCE DAILY
     Route: 048
     Dates: start: 202212

REACTIONS (3)
  - Ovarian cancer [Unknown]
  - Dyspnoea [Unknown]
  - Restlessness [Unknown]

NARRATIVE: CASE EVENT DATE: 20231127
